FAERS Safety Report 9263199 (Version 1)
Quarter: 2013Q2

REPORT INFORMATION
  Report Type: Spontaneous
  Country: IN (occurrence: None)
  Receive Date: 20130425
  Receipt Date: 20130425
  Transmission Date: 20140414
  Serious: Yes (Life-Threatening, Hospitalization)
  Sender: FDA-Public Use
  Company Number: 2013P1004932

PATIENT
  Age: 30 Year
  Sex: Female

DRUGS (1)
  1. DIGOXIN [Suspect]
     Indication: SUICIDE ATTEMPT
     Route: 048

REACTIONS (12)
  - Suicide attempt [None]
  - Toxicity to various agents [None]
  - Nausea [None]
  - Vomiting [None]
  - Heart rate increased [None]
  - Hypotension [None]
  - Diplopia [None]
  - Vision blurred [None]
  - Xanthopsia [None]
  - Bradycardia [None]
  - Atrioventricular block complete [None]
  - Incorrect dose administered [None]
